FAERS Safety Report 19250813 (Version 5)
Quarter: 2023Q1

REPORT INFORMATION
  Report Type: Report from Study
  Country: JP (occurrence: JP)
  Receive Date: 20210513
  Receipt Date: 20230117
  Transmission Date: 20230418
  Serious: Yes (Hospitalization, Other)
  Sender: FDA-Public Use
  Company Number: JP-ONO-2020JP016047

PATIENT
  Age: 77 Year
  Sex: Female
  Weight: 60 kg

DRUGS (68)
  1. ETELCALCETIDE [Suspect]
     Active Substance: ETELCALCETIDE
     Indication: Hyperparathyroidism secondary
     Dosage: 5 MILLIGRAM, Q56H
     Route: 010
     Dates: start: 20181205, end: 20181217
  2. ETELCALCETIDE [Suspect]
     Active Substance: ETELCALCETIDE
     Dosage: 7.5 MILLIGRAM, Q56H
     Route: 010
     Dates: start: 20181219, end: 20190107
  3. ETELCALCETIDE [Suspect]
     Active Substance: ETELCALCETIDE
     Dosage: 2.5 MILLIGRAM, Q56H
     Route: 010
     Dates: start: 20190109, end: 20190408
  4. ETELCALCETIDE [Suspect]
     Active Substance: ETELCALCETIDE
     Dosage: 2.5 MILLIGRAM, Q84H
     Route: 010
     Dates: start: 20190412, end: 20190520
  5. ETELCALCETIDE [Suspect]
     Active Substance: ETELCALCETIDE
     Dosage: 2.5 MILLIGRAM, Q56H
     Route: 010
     Dates: start: 20200307, end: 20200912
  6. ETELCALCETIDE [Suspect]
     Active Substance: ETELCALCETIDE
     Dosage: 2.5 MILLIGRAM, QW
     Route: 010
     Dates: start: 20200915
  7. ROCALTROL [Concomitant]
     Active Substance: CALCITRIOL
     Indication: Hyperparathyroidism secondary
     Dosage: 1 MICROGRAM, Q56H
     Route: 040
     Dates: start: 20181019, end: 20190130
  8. ROCALTROL [Concomitant]
     Active Substance: CALCITRIOL
     Dosage: 0.5 MICROGRAM, Q84H
     Route: 042
     Dates: start: 20190201, end: 20190415
  9. ROCALTROL [Concomitant]
     Active Substance: CALCITRIOL
     Dosage: 1 MICROGRAM, QWK
     Route: 042
     Dates: start: 20190206, end: 20190410
  10. ROCALTROL [Concomitant]
     Active Substance: CALCITRIOL
     Dosage: 1 MICROGRAM, Q56H
     Route: 042
     Dates: start: 20190417, end: 20190529
  11. ROCALTROL [Concomitant]
     Active Substance: CALCITRIOL
     Dosage: 0.5 MICROGRAM, Q56H
     Route: 042
     Dates: start: 20190531, end: 20190710
  12. ROCALTROL [Concomitant]
     Active Substance: CALCITRIOL
     Dosage: 1 MICROGRAM, Q56H
     Route: 042
     Dates: start: 20190712, end: 20190813
  13. ROCALTROL [Concomitant]
     Active Substance: CALCITRIOL
     Dosage: 1 MICROGRAM, QWK
     Route: 042
     Dates: start: 20190815, end: 20190822
  14. ROCALTROL [Concomitant]
     Active Substance: CALCITRIOL
     Dosage: 0.5 MICROGRAM, Q84H
     Route: 042
     Dates: start: 20190817, end: 20190924
  15. ROCALTROL [Concomitant]
     Active Substance: CALCITRIOL
     Dosage: 0.5 MICROGRAM, Q56H
     Route: 042
     Dates: start: 20190926, end: 20191024
  16. ROCALTROL [Concomitant]
     Active Substance: CALCITRIOL
     Dosage: 0.5 MICROGRAM, Q84H
     Route: 042
     Dates: start: 20191026, end: 20200303
  17. ROCALTROL [Concomitant]
     Active Substance: CALCITRIOL
     Dosage: 1 MICROGRAM, QWK
     Route: 042
     Dates: start: 20191031, end: 20200305
  18. ROCALTROL [Concomitant]
     Active Substance: CALCITRIOL
     Dosage: 0.5 MICROGRAM, Q56H
     Route: 042
     Dates: start: 20200307, end: 20200423
  19. ROCALTROL [Concomitant]
     Active Substance: CALCITRIOL
     Dosage: 0.5 MICROGRAM, QWK
     Route: 042
     Dates: start: 20200428, end: 20200721
  20. ROCALTROL [Concomitant]
     Active Substance: CALCITRIOL
     Dosage: 0.5 MICROGRAM, Q56H
     Route: 042
     Dates: start: 20200728, end: 20200912
  21. ROCALTROL [Concomitant]
     Active Substance: CALCITRIOL
     Dosage: 0.5 MICROGRAM, QWK
     Route: 042
     Dates: start: 20200915, end: 20201013
  22. ROCALTROL [Concomitant]
     Active Substance: CALCITRIOL
     Dosage: 0.5 MICROGRAM,, Q84H
     Route: 042
     Dates: start: 20201020, end: 20201212
  23. ROCALTROL [Concomitant]
     Active Substance: CALCITRIOL
     Dosage: 0.5 MICROGRAM, Q56H
     Route: 042
     Dates: start: 20201215, end: 20210708
  24. ROCALTROL [Concomitant]
     Active Substance: CALCITRIOL
     Dosage: 1.5 MICROGRAM, Q56H
     Route: 040
     Dates: start: 20210710, end: 20210812
  25. ROCALTROL [Concomitant]
     Active Substance: CALCITRIOL
     Dosage: 0.5 MICROGRAM, Q56H
     Route: 040
     Dates: start: 20210814, end: 20220730
  26. ROCALTROL [Concomitant]
     Active Substance: CALCITRIOL
     Dosage: 0.5 MICROGRAM, Q84H
     Route: 042
     Dates: start: 20220802, end: 20220809
  27. ROCALTROL [Concomitant]
     Active Substance: CALCITRIOL
     Dosage: 1 MICROGRAM, QWK
     Route: 040
     Dates: start: 20220804, end: 20220804
  28. ROCALTROL [Concomitant]
     Active Substance: CALCITRIOL
     Dosage: 0.5 MICROGRAM, Q84H
     Route: 040
     Dates: start: 20220820, end: 20220825
  29. ROCALTROL [Concomitant]
     Active Substance: CALCITRIOL
     Dosage: 1 MICROGRAM, Q56H
     Route: 042
     Dates: start: 20181019, end: 20190130
  30. Fesin [Concomitant]
     Dosage: 80 MILLIGRAM, QWK
     Route: 042
     Dates: end: 20181119
  31. Fesin [Concomitant]
     Dosage: 80 MILLIGRAM, QWK
     Route: 042
     Dates: start: 20181214, end: 20181224
  32. Fesin [Concomitant]
     Dosage: 80 MILLIGRAM, QWK
     Route: 042
     Dates: start: 20190412, end: 20190429
  33. Fesin [Concomitant]
     Dosage: 80 MILLIGRAM, QWK
     Route: 042
     Dates: start: 20190517, end: 20190603
  34. Fesin [Concomitant]
     Dosage: 80 MILLIGRAM, QWK
     Route: 042
     Dates: start: 20190712, end: 20190729
  35. Fesin [Concomitant]
     Dosage: 80 MILLIGRAM, QWK
     Route: 042
     Dates: start: 20191214, end: 20191230
  36. Fesin [Concomitant]
     Dosage: 80 MILLIGRAM, QWK
     Route: 042
     Dates: start: 20200613, end: 20200620
  37. Fesin [Concomitant]
     Dosage: 80 MILLIGRAM, QWK
     Route: 042
     Dates: start: 20200815, end: 20200825
  38. Fesin [Concomitant]
     Dosage: 80 MILLIGRAM, QWK
     Route: 042
     Dates: start: 20201010, end: 20201103
  39. Fesin [Concomitant]
     Dosage: 80 MILLIGRAM, QWK
     Route: 042
     Dates: start: 20201107, end: 20201117
  40. Fesin [Concomitant]
     Dosage: 80 MILLIGRAM, QWK
     Route: 042
     Dates: start: 20210109, end: 20210209
  41. Fesin [Concomitant]
     Dosage: 80 MILLIGRAM, QWK
     Route: 040
     Dates: start: 20210814, end: 20210914
  42. Fesin [Concomitant]
     Dosage: 80 MILLIGRAM, QWK
     Route: 040
     Dates: start: 20211106, end: 20211116
  43. Fesin [Concomitant]
     Dosage: 80 MILLIGRAM, QWK
     Route: 040
     Dates: start: 20220212, end: 20220315
  44. Fesin [Concomitant]
     Dosage: 80 MILLIGRAM, QWK
     Route: 040
     Dates: start: 20220409, end: 20220426
  45. Fesin [Concomitant]
     Dosage: 80 MILLIGRAM, QWK
     Route: 040
     Dates: start: 20220611, end: 20220625
  46. Fesin [Concomitant]
     Dosage: 80 MILLIGRAM, QWK
     Route: 040
     Dates: start: 20221015, end: 20221122
  47. CALTAN [Concomitant]
     Active Substance: CALCIUM CARBONATE
     Dosage: 1500 MILLIGRAM, QD
     Route: 048
     Dates: start: 20190312, end: 20220901
  48. CALTAN [Concomitant]
     Active Substance: CALCIUM CARBONATE
     Dosage: 1500 MILLIGRAM, QD
     Route: 048
     Dates: start: 20221124
  49. ERYTHROPOIETIN [Concomitant]
     Active Substance: ERYTHROPOIETIN
     Dosage: 2250 INTERNATIONAL UNIT, QWK
     Route: 042
     Dates: end: 20181210
  50. ERYTHROPOIETIN [Concomitant]
     Active Substance: ERYTHROPOIETIN
     Dosage: 750 INTERNATIONAL UNIT, QWK
     Route: 042
     Dates: start: 20181217, end: 20190211
  51. ERYTHROPOIETIN [Concomitant]
     Active Substance: ERYTHROPOIETIN
     Dosage: 2250 INTERNATIONAL UNIT, QWK
     Route: 042
     Dates: start: 20190213, end: 20190225
  52. ERYTHROPOIETIN [Concomitant]
     Active Substance: ERYTHROPOIETIN
     Dosage: 3000 INTERNATIONAL UNIT, QWK
     Route: 042
     Dates: start: 20190227, end: 20190325
  53. ERYTHROPOIETIN [Concomitant]
     Active Substance: ERYTHROPOIETIN
     Dosage: 2250 INTERNATIONAL UNIT, QWK
     Route: 042
     Dates: start: 20200627, end: 20200709
  54. ERYTHROPOIETIN [Concomitant]
     Active Substance: ERYTHROPOIETIN
     Dosage: 3750 INTERNATIONAL UNIT, QWK
     Route: 042
     Dates: start: 20200711, end: 20200723
  55. ERYTHROPOIETIN [Concomitant]
     Active Substance: ERYTHROPOIETIN
     Dosage: 6000 INTERNATIONAL UNIT, QWK
     Route: 042
     Dates: start: 20200725, end: 20200813
  56. ERYTHROPOIETIN [Concomitant]
     Active Substance: ERYTHROPOIETIN
     Dosage: 8250 INTERNATIONAL UNIT, QWK
     Route: 042
     Dates: start: 20200815, end: 20201105
  57. ERYTHROPOIETIN [Concomitant]
     Active Substance: ERYTHROPOIETIN
     Dosage: 6750 INTERNATIONAL UNIT, QWK
     Route: 042
     Dates: start: 20201107, end: 20201119
  58. ERYTHROPOIETIN [Concomitant]
     Active Substance: ERYTHROPOIETIN
     Dosage: 5250 INTERNATIONAL UNIT, QWK
     Route: 042
     Dates: start: 20201121, end: 20201201
  59. ERYTHROPOIETIN [Concomitant]
     Active Substance: ERYTHROPOIETIN
     Dosage: 3000 INTERNATIONAL UNIT, QWK
     Route: 042
     Dates: start: 20201203, end: 20210102
  60. ERYTHROPOIETIN [Concomitant]
     Active Substance: ERYTHROPOIETIN
     Dosage: 1500 INTERNATIONAL UNIT, QWK
     Route: 042
     Dates: start: 20210105, end: 20210123
  61. ERYTHROPOIETIN [Concomitant]
     Active Substance: ERYTHROPOIETIN
     Dosage: 750 INTERNATIONAL UNIT, QWK
     Route: 042
     Dates: start: 20210126, end: 20210216
  62. ERYTHROPOIETIN [Concomitant]
     Active Substance: ERYTHROPOIETIN
     Dosage: 750 INTERNATIONAL UNIT, QWK
     Route: 040
     Dates: start: 20220226, end: 20220702
  63. ERYTHROPOIETIN [Concomitant]
     Active Substance: ERYTHROPOIETIN
     Dosage: 1500 INTERNATIONAL UNIT, QWK
     Route: 040
     Dates: start: 20220827, end: 20220920
  64. ERYTHROPOIETIN [Concomitant]
     Active Substance: ERYTHROPOIETIN
     Dosage: 2250 INTERNATIONAL UNIT, QWK
     Route: 040
     Dates: start: 20220922, end: 20221025
  65. ERYTHROPOIETIN [Concomitant]
     Active Substance: ERYTHROPOIETIN
     Dosage: 4500 INTERNATIONAL UNIT, QWK
     Route: 040
     Dates: start: 20221027
  66. MAXACALCITOL [Concomitant]
     Active Substance: MAXACALCITOL
     Dosage: 5 MICROGRAM, Q84H
     Route: 042
     Dates: start: 20220810, end: 20220815
  67. MAXACALCITOL [Concomitant]
     Active Substance: MAXACALCITOL
     Dosage: 10 MICROGRAM, QW
     Route: 040
     Dates: start: 20220812, end: 20220817
  68. MAXACALCITOL [Concomitant]
     Active Substance: MAXACALCITOL
     Dosage: 2.5 MICROGRAM, Q56H
     Route: 040
     Dates: start: 20220922

REACTIONS (12)
  - Cholangitis [Recovered/Resolved]
  - Lumbar vertebral fracture [Recovering/Resolving]
  - Shunt occlusion [Recovered/Resolved]
  - Shunt occlusion [Recovered/Resolved]
  - Shunt stenosis [Recovered/Resolved]
  - Shunt stenosis [Recovered/Resolved]
  - Shunt stenosis [Recovered/Resolved]
  - Shunt stenosis [Recovered/Resolved]
  - Shunt stenosis [Recovered/Resolved]
  - Shunt stenosis [Recovered/Resolved]
  - Inappropriate schedule of product administration [Unknown]
  - Inappropriate schedule of product administration [Unknown]

NARRATIVE: CASE EVENT DATE: 20190412
